FAERS Safety Report 17949427 (Version 3)
Quarter: 2021Q3

REPORT INFORMATION
  Report Type: Report from Study
  Country: MX (occurrence: MX)
  Receive Date: 20200626
  Receipt Date: 20210831
  Transmission Date: 20211014
  Serious: Yes (Other)
  Sender: FDA-Public Use
  Company Number: MX-NOVOPROD-735948

PATIENT
  Age: 45 Year
  Sex: Female
  Weight: 73 kg

DRUGS (7)
  1. EUTIROX [Concomitant]
     Active Substance: LEVOTHYROXINE SODIUM
     Dosage: 75 MG
  2. OZEMPIC [Suspect]
     Active Substance: SEMAGLUTIDE
     Dosage: 0.25 MG, QW
     Route: 058
     Dates: start: 20200625
  3. OZEMPIC [Suspect]
     Active Substance: SEMAGLUTIDE
     Dosage: 0.50 MG, QW
     Route: 058
     Dates: start: 20200611
  4. OZEMPIC [Suspect]
     Active Substance: SEMAGLUTIDE
     Dosage: 6 STRIPES ABOVE 0.25 MG (DOSE BETWEEN 0.25 AND 0.5 MG)
     Route: 058
     Dates: start: 202011
  5. OZEMPIC [Suspect]
     Active Substance: SEMAGLUTIDE
     Dosage: 0.50 MG, QW
     Route: 058
     Dates: start: 20200604
  6. OZEMPIC [Suspect]
     Active Substance: SEMAGLUTIDE
     Dosage: 0.5 MG, QW
     Route: 058
     Dates: start: 202009
  7. OZEMPIC [Suspect]
     Active Substance: SEMAGLUTIDE
     Indication: INSULIN RESISTANCE
     Dosage: UNK
     Route: 058
     Dates: start: 20200423

REACTIONS (10)
  - Diarrhoea [Recovered/Resolved]
  - Food aversion [Recovered/Resolved]
  - Abdominal pain upper [Recovered/Resolved]
  - Decreased appetite [Recovered/Resolved]
  - Off label use [Not Recovered/Not Resolved]
  - Constipation [Recovered/Resolved]
  - Gastritis [Recovered/Resolved]
  - Regurgitation [Recovered/Resolved]
  - Eructation [Recovered/Resolved]
  - Asthenia [Recovered/Resolved]

NARRATIVE: CASE EVENT DATE: 2020
